FAERS Safety Report 20797593 (Version 3)
Quarter: 2023Q1

REPORT INFORMATION
  Report Type: Spontaneous
  Country: US (occurrence: US)
  Receive Date: 20220506
  Receipt Date: 20230208
  Transmission Date: 20230418
  Serious: No
  Sender: FDA-Public Use
  Company Number: US-PFIZER INC-202200463319

PATIENT
  Age: 76 Year
  Sex: Female
  Weight: 73.03 kg

DRUGS (2)
  1. LORBRENA [Suspect]
     Active Substance: LORLATINIB
     Indication: Lung carcinoma cell type unspecified stage 0
     Dosage: 75 MG, 1X/DAY (THREE 25MG TABLETS)
     Route: 048
     Dates: start: 202104
  2. LORBRENA [Suspect]
     Active Substance: LORLATINIB
     Dosage: 25 MG

REACTIONS (2)
  - Weight increased [Unknown]
  - Off label use [Unknown]
